FAERS Safety Report 13653073 (Version 1)
Quarter: 2017Q2

REPORT INFORMATION
  Report Type: Spontaneous
  Country: US (occurrence: US)
  Receive Date: 20170614
  Receipt Date: 20170614
  Transmission Date: 20170830
  Serious: No
  Sender: FDA-Public Use
  Company Number: US-ROCHE-644223

PATIENT
  Age: 53 Year
  Sex: Female

DRUGS (1)
  1. XELODA [Suspect]
     Active Substance: CAPECITABINE
     Indication: ENDOMETRIAL CANCER
     Dosage: LAST DOSE TAKEN ON APPROXIMATELY 14 JULY 2009.
     Route: 065

REACTIONS (3)
  - Pain in extremity [Unknown]
  - Chest pain [Unknown]
  - Musculoskeletal pain [Unknown]
